FAERS Safety Report 13468515 (Version 1)
Quarter: 2017Q2

REPORT INFORMATION
  Report Type: Spontaneous
  Country: ES (occurrence: ES)
  Receive Date: 20170421
  Receipt Date: 20170421
  Transmission Date: 20170830
  Serious: Yes (Death, Life-Threatening, Hospitalization, Other)
  Sender: FDA-Public Use
  Company Number: ES-LINDE GAS NORTH AMERICA LLC, LINDE GAS PUERTO RICO INC.-ES-LHC-2017094

PATIENT
  Sex: Female
  Weight: .71 kg

DRUGS (1)
  1. OXYGEN (GENERIC) [Suspect]
     Active Substance: OXYGEN

REACTIONS (2)
  - Pneumocephalus [Fatal]
  - Brain injury [Fatal]
